FAERS Safety Report 6994089-3 (Version None)
Quarter: 2010Q3

REPORT INFORMATION
  Report Type: 
  Country: None (occurrence: None)
  Receive Date: 20100917
  Receipt Date: 20071022
  Transmission Date: 20110219
  Serious: Yes (Other)
  Sender: FDA-Public Use
  Company Number: US-ASTRAZENECA-2007UW16813

PATIENT
  Sex: Male
  Weight: 63.5 kg

DRUGS (10)
  1. SEROQUEL [Suspect]
     Indication: CONVULSION
     Dosage: 25-150MG
     Route: 048
     Dates: start: 20051211
  2. SEROQUEL [Suspect]
     Indication: AGITATION
     Dosage: 25-150MG
     Route: 048
     Dates: start: 20051211
  3. SEROQUEL [Suspect]
     Dosage: 25-75 MG
     Route: 048
     Dates: end: 20051201
  4. SEROQUEL [Suspect]
     Dosage: 25-75 MG
     Route: 048
     Dates: end: 20051201
  5. ABILIFY [Concomitant]
     Dates: start: 20051101
  6. TRIAZOLAM [Concomitant]
  7. ARICEPT [Concomitant]
  8. DILANTIN [Concomitant]
     Dates: start: 19990917
  9. VIKASE [Concomitant]
     Dosage: 3 TABLETS DAILY
     Dates: start: 19990917
  10. CARBAMAZEPINE [Concomitant]
     Dosage: 100-400 MG
     Route: 048
     Dates: start: 20051107

REACTIONS (3)
  - CONVULSION [None]
  - DIABETES MELLITUS [None]
  - PANCREATITIS [None]
